FAERS Safety Report 5504472-0 (Version None)
Quarter: 2007Q4

REPORT INFORMATION
  Report Type: 
  Country: None (occurrence: None)
  Receive Date: 20071030
  Receipt Date: 20070814
  Transmission Date: 20080405
  Serious: No
  Sender: FDA-Public Use
  Company Number: 266484

PATIENT
  Age: 81 Year
  Sex: Female

DRUGS (2)
  1. LEVEMIR [Suspect]
     Indication: DIABETES MELLITUS
     Dosage: SUBCUTANEOUS
     Route: 058
     Dates: start: 20060801
  2. BYETTA (EXENATIDE, EXENATIDE) [Concomitant]

REACTIONS (2)
  - DEVICE FAILURE [None]
  - INJECTION SITE BRUISING [None]
